FAERS Safety Report 4827194-8 (Version None)
Quarter: 2005Q4

REPORT INFORMATION
  Report Type: 
  Country: None (occurrence: None)
  Receive Date: 20051014
  Receipt Date: 20050808
  Transmission Date: 20060501
  Serious: No
  Sender: FDA-Public Use
  Company Number: 2005SP000176

PATIENT
  Age: 54 Year
  Sex: Male
  Weight: 74.8435 kg

DRUGS (3)
  1. LUNESTA [Suspect]
     Indication: INSOMNIA
     Dosage: 2 MG; HS; ORAL
     Route: 048
     Dates: start: 20050412, end: 20050413
  2. KLONIPIN (0.5 MG) [Suspect]
     Indication: INSOMNIA
     Dosage: 0.5 MG; QD; ORAL
     Route: 048
  3. NORTRIPTYLINE HCL [Concomitant]

REACTIONS (4)
  - DRUG INEFFECTIVE [None]
  - DRUG INTERACTION [None]
  - INITIAL INSOMNIA [None]
  - TINNITUS [None]
